FAERS Safety Report 6931335-6 (Version None)
Quarter: 2010Q3

REPORT INFORMATION
  Report Type: 
  Country: None (occurrence: None)
  Receive Date: 20100816
  Receipt Date: 20100806
  Transmission Date: 20110219
  Serious: Yes (Other)
  Sender: FDA-Public Use
  Company Number: CAP10000014

PATIENT
  Age: 64 Year
  Sex: Female
  Weight: 72 kg

DRUGS (2)
  1. ACTONEL [Suspect]
     Indication: OSTEOPOROSIS
     Dosage: 35 MG, 1/WEEK, ORAL
     Route: 048
     Dates: start: 20090103, end: 20090202
  2. EURO-CAL-D (CALCIUM, COLECALCIFEROL) [Concomitant]

REACTIONS (11)
  - DIZZINESS [None]
  - EYE PAIN [None]
  - EYE SWELLING [None]
  - METAMORPHOPSIA [None]
  - OEDEMA MOUTH [None]
  - ORAL HERPES [None]
  - ORAL PAIN [None]
  - PARAESTHESIA [None]
  - PERIORBITAL HAEMATOMA [None]
  - TOOTH DISORDER [None]
  - TOOTHACHE [None]
